FAERS Safety Report 19020025 (Version 1)
Quarter: 2021Q1

REPORT INFORMATION
  Report Type: Spontaneous
  Country: US (occurrence: US)
  Receive Date: 20210317
  Receipt Date: 20210317
  Transmission Date: 20210420
  Serious: No
  Sender: FDA-Public Use
  Company Number: None

PATIENT
  Sex: Female

DRUGS (4)
  1. OXYCODONE [Suspect]
     Active Substance: OXYCODONE
     Indication: PAIN
  2. OXYCODONE [Suspect]
     Active Substance: OXYCODONE
     Indication: PAIN IN EXTREMITY
  3. OXYCODONE [Suspect]
     Active Substance: OXYCODONE
     Indication: SPINAL DISORDER
  4. OXYCODONE [Suspect]
     Active Substance: OXYCODONE
     Indication: BONE PAIN

REACTIONS (7)
  - Burning sensation [None]
  - Product taste abnormal [None]
  - Product physical issue [None]
  - Therapeutic product effect variable [None]
  - Product formulation issue [None]
  - Hypersensitivity [None]
  - Product physical consistency issue [None]

NARRATIVE: CASE EVENT DATE: 20210317
